FAERS Safety Report 22201513 (Version 1)
Quarter: 2023Q2

REPORT INFORMATION
  Report Type: Spontaneous
  Country: CN (occurrence: CN)
  Receive Date: 20230412
  Receipt Date: 20230412
  Transmission Date: 20230722
  Serious: Yes (Other)
  Sender: FDA-Public Use
  Company Number: CN-MYLANLABS-2023M1037704

PATIENT
  Age: 73 Year
  Sex: Female
  Weight: 50 kg

DRUGS (1)
  1. LYRICA [Suspect]
     Active Substance: PREGABALIN
     Indication: Neuralgia
     Dosage: 150 MILLIGRAM, BID
     Route: 048
     Dates: start: 20230404, end: 20230404

REACTIONS (3)
  - Dizziness [Recovering/Resolving]
  - Asthenia [Recovering/Resolving]
  - Frigophobia [Recovering/Resolving]

NARRATIVE: CASE EVENT DATE: 20230404
